FAERS Safety Report 9067308 (Version 2)
Quarter: 2013Q1

REPORT INFORMATION
  Report Type: Spontaneous
  Country: US (occurrence: US)
  Receive Date: 20130202
  Receipt Date: 20130221
  Transmission Date: 20140127
  Serious: Yes (Hospitalization, Other)
  Sender: FDA-Public Use
  Company Number: US-AMGEN-USASP2013006247

PATIENT
  Age: 49 Year
  Sex: Female
  Weight: 88.89 kg

DRUGS (2)
  1. ENBREL [Suspect]
     Indication: RHEUMATOID ARTHRITIS
     Dosage: 50 MG, QWK
     Route: 058
     Dates: start: 201112
  2. METHOTREXATE [Concomitant]
     Dosage: 20 MG, 8 TABLETS (2.5 MG EACH) ONCE A WEEK
     Route: 048
     Dates: start: 200905

REACTIONS (5)
  - Osteoarthritis [Recovered/Resolved]
  - Effusion [Recovered/Resolved]
  - Hand fracture [Not Recovered/Not Resolved]
  - Bunion [Recovered/Resolved]
  - Rotator cuff repair [Not Recovered/Not Resolved]
